FAERS Safety Report 13840239 (Version 1)
Quarter: 2017Q3

REPORT INFORMATION
  Report Type: Spontaneous
  Country: US (occurrence: US)
  Receive Date: 20170807
  Receipt Date: 20170807
  Transmission Date: 20171127
  Serious: Yes (Hospitalization, Disabling)
  Sender: FDA-Public Use
  Company Number: None

PATIENT
  Sex: Female
  Weight: 81 kg

DRUGS (2)
  1. CLARITHROMYCIN 500MG TAB CIT [Suspect]
     Active Substance: CLARITHROMYCIN CITRATE
     Indication: SINUSITIS
     Dosage: ?          QUANTITY:20 TABLET(S);?
     Route: 048
     Dates: start: 20170714, end: 20170714
  2. METOPROLOL ER [Concomitant]
     Active Substance: METOPROLOL SUCCINATE

REACTIONS (3)
  - Sinus tachycardia [None]
  - Dyspnoea [None]
  - Arrhythmia [None]

NARRATIVE: CASE EVENT DATE: 20170714
